FAERS Safety Report 5082654-2 (Version None)
Quarter: 2006Q3

REPORT INFORMATION
  Report Type: 
  Country: None (occurrence: None)
  Receive Date: 20060814
  Receipt Date: 20060803
  Transmission Date: 20061208
  Serious: Yes (Other)
  Sender: FDA-Public Use
  Company Number: 14518

PATIENT
  Age: 48 Year
  Sex: Female

DRUGS (8)
  1. GRANISETRON [Suspect]
     Indication: SENSORY DISTURBANCE
     Dosage: 1 MG ONCE IV
     Route: 042
     Dates: start: 20060408, end: 20060408
  2. PROPOFOL [Suspect]
     Indication: SENSORY DISTURBANCE
     Dosage: 200 MG ONCE IV
     Route: 042
     Dates: start: 20060408, end: 20060408
  3. DROPERIDOL [Suspect]
     Indication: SENSORY DISTURBANCE
     Dosage: 1 MG ONCE IV
     Route: 042
     Dates: start: 20060408, end: 20060408
  4. DEXAMETHASONE [Suspect]
     Indication: SENSORY DISTURBANCE
     Dosage: 8 MG ONCE IV
     Route: 042
     Dates: start: 20060408, end: 20060408
  5. MORPHINE SULFATE [Suspect]
     Indication: SENSORY DISTURBANCE
     Dosage: 5 MG ONCE IV
     Route: 042
     Dates: start: 20060408, end: 20060408
  6. MIDAZOLAM [Suspect]
     Dosage: 5 MG ONCE IV
     Route: 042
     Dates: start: 20060408, end: 20060408
  7. ROCURONIUM BROMIDE [Suspect]
     Indication: SENSORY DISTURBANCE
     Dosage: 50 MG ONCE IV
     Route: 042
     Dates: start: 20060408
  8. KEFLIN NEUTRAL [Suspect]
     Indication: SENSORY DISTURBANCE
     Dosage: 100 MG ONCE IV
     Route: 042
     Dates: start: 20060408

REACTIONS (3)
  - HYPOTENSION [None]
  - RASH [None]
  - TACHYCARDIA [None]
